FAERS Safety Report 6671043-2 (Version None)
Quarter: 2010Q2

REPORT INFORMATION
  Report Type: 
  Country: None (occurrence: None)
  Receive Date: 20100406
  Receipt Date: 20100406
  Transmission Date: 20101027
  Serious: Yes (Hospitalization)
  Sender: FDA-Public Use
  Company Number: None

PATIENT
  Age: 55 Year
  Sex: Male

DRUGS (2)
  1. SIMVASTATIN [Suspect]
     Indication: HEPATITIS B
     Dosage: 40 MG PM PO
     Route: 048
     Dates: start: 20050404, end: 20060328
  2. SIMVASTATIN [Suspect]
     Indication: HYPERLIPIDAEMIA
     Dosage: 40 MG PM PO
     Route: 048
     Dates: start: 20050404, end: 20060328

REACTIONS (4)
  - ANTI-HBC IGG ANTIBODY POSITIVE [None]
  - ANTI-HBS ANTIBODY NEGATIVE [None]
  - HEPATITIS B [None]
  - HEPATITIS B SURFACE ANTIGEN POSITIVE [None]
